FAERS Safety Report 4829211-8 (Version None)
Quarter: 2005Q4

REPORT INFORMATION
  Report Type: 
  Country: None (occurrence: None)
  Receive Date: 20051116
  Receipt Date: 20050913
  Transmission Date: 20060501
  Serious: Yes (Death, Hospitalization)
  Sender: FDA-Public Use
  Company Number: DE-BRISTOL-MYERS SQUIBB COMPANY-13108691

PATIENT
  Age: 61 Year
  Sex: Male

DRUGS (10)
  1. CETUXIMAB [Suspect]
     Indication: COLORECTAL CANCER METASTATIC
     Route: 042
     Dates: start: 20050907, end: 20050907
  2. IRINOTECAN HCL [Suspect]
     Indication: COLORECTAL CANCER METASTATIC
     Route: 042
     Dates: start: 20050831, end: 20050831
  3. ALLOPURINOL [Concomitant]
     Route: 048
     Dates: start: 19950101
  4. AMIODARONE [Concomitant]
     Route: 048
     Dates: start: 19950101
  5. DICLOFENAC [Concomitant]
     Route: 048
     Dates: start: 19950101
  6. ENALAPRIL MALEATE [Concomitant]
     Route: 048
     Dates: start: 19950101
  7. FUROSEMIDE [Concomitant]
     Route: 048
     Dates: start: 19950101
  8. LEVOTHYROXINE SODIUM [Concomitant]
     Route: 048
     Dates: start: 19910101
  9. OMEPRAZOLE [Concomitant]
     Route: 048
     Dates: start: 20030101
  10. TIOTROPIUM BROMIDE [Concomitant]
     Route: 048
     Dates: start: 19950101

REACTIONS (3)
  - CARDIAC FAILURE [None]
  - DIARRHOEA [None]
  - RENAL FAILURE [None]
